FAERS Safety Report 6328772-X (Version None)
Quarter: 2009Q3

REPORT INFORMATION
  Report Type: 
  Country: None (occurrence: None)
  Receive Date: 20090826
  Receipt Date: 20090820
  Transmission Date: 20100115
  Serious: Yes (Other)
  Sender: FDA-Public Use
  Company Number: US-ALLERGAN-0909539US

PATIENT
  Age: 41 Year
  Sex: Female
  Weight: 55.782 kg

DRUGS (8)
  1. BOTOX COSMETIC [Suspect]
     Indication: SKIN WRINKLING
     Dosage: 35 UNITS, SINGLE
     Route: 030
     Dates: start: 20090521, end: 20090521
  2. BOTOX COSMETIC [Suspect]
     Dosage: 10 UNITS, SINGLE
     Route: 030
     Dates: start: 20090606, end: 20090606
  3. BOTOX COSMETIC [Suspect]
     Dosage: 4 UNITS, SINGLE
     Route: 030
     Dates: start: 20090620, end: 20090620
  4. PLAQUENIL [Concomitant]
     Dosage: UNK, QOD
  5. ASPIRIN [Concomitant]
  6. ZANTAC [Concomitant]
  7. STROVITE [Concomitant]
  8. MAGNESIUM [Concomitant]

REACTIONS (16)
  - DIZZINESS [None]
  - DRUG INEFFECTIVE [None]
  - DYSPNOEA [None]
  - EYE PRURITUS [None]
  - EYELID PTOSIS [None]
  - FACIAL PARESIS [None]
  - HYPOACUSIS [None]
  - HYPOAESTHESIA [None]
  - HYPOAESTHESIA FACIAL [None]
  - HYPOAESTHESIA ORAL [None]
  - INJECTION SITE PRURITUS [None]
  - NAUSEA [None]
  - PRURITUS [None]
  - SWOLLEN TONGUE [None]
  - TONGUE INJURY [None]
  - WRONG TECHNIQUE IN DRUG USAGE PROCESS [None]
